FAERS Safety Report 14376434 (Version 2)
Quarter: 2018Q1

REPORT INFORMATION
  Report Type: Spontaneous
  Country: US (occurrence: US)
  Receive Date: 20180111
  Receipt Date: 20180129
  Transmission Date: 20180509
  Serious: Yes (Life-Threatening, Hospitalization, Other)
  Sender: FDA-Public Use
  Company Number: US-BRISTOL-MYERS SQUIBB COMPANY-BMS-2018-001488

PATIENT
  Sex: Female
  Weight: 54.8 kg

DRUGS (3)
  1. AZITHROMYCIN ANHYDROUS. [Concomitant]
     Active Substance: AZITHROMYCIN ANHYDROUS
     Indication: PRODUCT USED FOR UNKNOWN INDICATION
     Dosage: UNK
     Route: 065
  2. APIXABAN [Suspect]
     Active Substance: APIXABAN
     Indication: CEREBROVASCULAR ACCIDENT PROPHYLAXIS
     Dosage: 2.5 MG, BID
     Route: 065
     Dates: start: 20161101, end: 20171201
  3. ASPIRIN 81 [Suspect]
     Active Substance: ASPIRIN
     Indication: ATRIAL FIBRILLATION
     Dosage: 81 MG, UNK
     Route: 065

REACTIONS (2)
  - Accelerated hypertension [Unknown]
  - Haemorrhagic stroke [Unknown]
